FAERS Safety Report 12631911 (Version 3)
Quarter: 2016Q3

REPORT INFORMATION
  Report Type: Spontaneous
  Country: US (occurrence: US)
  Receive Date: 20160808
  Receipt Date: 20160808
  Transmission Date: 20161109
  Serious: No
  Sender: FDA-Public Use
  Company Number: US-BEH-2016061406

PATIENT
  Sex: Female
  Weight: 54 kg

DRUGS (23)
  1. DIPHENOXYLATE-ATROPINE [Concomitant]
  2. CARTIA XT [Concomitant]
     Active Substance: DILTIAZEM HYDROCHLORIDE
  3. DIPHENHYDRAMINE. [Concomitant]
     Active Substance: DIPHENHYDRAMINE
  4. ACYCLOVIR. [Concomitant]
     Active Substance: ACYCLOVIR
  5. ACETAMINOPHEN. [Concomitant]
     Active Substance: ACETAMINOPHEN
  6. LEVOTHYROXINE. [Concomitant]
     Active Substance: LEVOTHYROXINE
  7. CITRACAL+D [Concomitant]
  8. BEANO [Concomitant]
     Active Substance: ASPERGILLUS NIGER .ALPHA.-GALACTOSIDASE
  9. ALIGN [Concomitant]
     Active Substance: BIFIDOBACTERIUM LONGUM SUBSP. INFANTIS
  10. L-M-X [Concomitant]
  11. XANAX [Concomitant]
     Active Substance: ALPRAZOLAM
  12. VITAMIN D [Concomitant]
     Active Substance: CHOLECALCIFEROL
  13. AZELASTINE [Concomitant]
     Active Substance: AZELASTINE
  14. EPIPEN [Concomitant]
     Active Substance: EPINEPHRINE
  15. TOPROL XL [Concomitant]
     Active Substance: METOPROLOL SUCCINATE
  16. PREVACID [Concomitant]
     Active Substance: LANSOPRAZOLE
  17. HIZENTRA [Suspect]
     Active Substance: HUMAN IMMUNOGLOBULIN G
     Indication: IMMUNODEFICIENCY COMMON VARIABLE
     Route: 058
  18. FLORASTOR [Concomitant]
     Active Substance: SACCHAROMYCES CEREVISIAE
  19. DETROL LA [Concomitant]
     Active Substance: TOLTERODINE TARTRATE
  20. NAPROXEN. [Concomitant]
     Active Substance: NAPROXEN
  21. QVAR [Concomitant]
     Active Substance: BECLOMETHASONE DIPROPIONATE
  22. ESTRACE [Concomitant]
     Active Substance: ESTRADIOL
  23. VITAMIN B COMPLEX [Concomitant]
     Active Substance: CYANOCOBALAMIN\DEXPANTHENOL\NIACINAMIDE\PYRIDOXINE HYDROCHLORIDE\RIBOFLAVIN 5^-PHOSPHATE SODIUM\THIAMINE HYDROCHLORIDE\VITAMIN B COMPLEX

REACTIONS (1)
  - Cystitis [Unknown]
